FAERS Safety Report 24207420 (Version 2)
Quarter: 2024Q3

REPORT INFORMATION
  Report Type: Report from Study
  Country: CA (occurrence: CA)
  Receive Date: 20240814
  Receipt Date: 20240915
  Transmission Date: 20241016
  Serious: No
  Sender: JOHNSON AND JOHNSON
  Company Number: CA-JNJFOC-20240805638

PATIENT
  Age: 64 Year
  Sex: Female

DRUGS (5)
  1. SIMPONI [Suspect]
     Active Substance: GOLIMUMAB
     Indication: Arthritis
     Dosage: STRENGTH: 50.00 MG / 0.50 ML
     Route: 058
     Dates: start: 20240728
  2. SIMPONI [Suspect]
     Active Substance: GOLIMUMAB
     Indication: Asthma
  3. SIMPONI [Suspect]
     Active Substance: GOLIMUMAB
     Indication: Hypertension
  4. SIMPONI [Suspect]
     Active Substance: GOLIMUMAB
     Indication: Arthritis
     Dosage: STRENGTH: 50.00 MG / 0.50 ML
     Route: 058
  5. SIMPONI [Suspect]
     Active Substance: GOLIMUMAB

REACTIONS (5)
  - Device deployment issue [Unknown]
  - Accidental exposure to product [Unknown]
  - Product dose omission issue [Unknown]
  - Device defective [Unknown]
  - Off label use [Unknown]

NARRATIVE: CASE EVENT DATE: 20240730
